FAERS Safety Report 11120667 (Version 2)
Quarter: 2015Q2

REPORT INFORMATION
  Report Type: Report from Study
  Country: IN (occurrence: IN)
  Receive Date: 20150519
  Receipt Date: 20150617
  Transmission Date: 20150821
  Serious: Yes (Death, Hospitalization)
  Sender: FDA-Public Use
  Company Number: IN-BAYER-2015-214841

PATIENT
  Age: 60 Year
  Sex: Female

DRUGS (1)
  1. NEXAVAR [Suspect]
     Active Substance: SORAFENIB
     Indication: THYROID CANCER
     Dosage: 400 MG, DAILY DOSE
     Route: 048
     Dates: start: 20150212, end: 201503

REACTIONS (10)
  - Dyspnoea [None]
  - Asthenia [None]
  - Musculoskeletal stiffness [None]
  - Blood calcium decreased [None]
  - Off label use [None]
  - Feeding disorder [None]
  - Aphagia [None]
  - Weight decreased [None]
  - Thyroid cancer [Fatal]
  - Blister [None]

NARRATIVE: CASE EVENT DATE: 2015
